FAERS Safety Report 8470765-0 (Version None)
Quarter: 2012Q2

REPORT INFORMATION
  Report Type: 
  Country: None (occurrence: None)
  Receive Date: 20120627
  Receipt Date: 20120619
  Transmission Date: 20120825
  Serious: Yes (Other)
  Sender: FDA-Public Use
  Company Number: US-BAYER-2012-009265

PATIENT
  Age: 49 Year
  Sex: Female
  Weight: 58 kg

DRUGS (5)
  1. VITAMIN B6 [Concomitant]
     Dosage: UNK
     Dates: start: 20050101, end: 20120604
  2. DROSPIRENONE AND ETHINYL ESTRADIOL [Suspect]
     Indication: MENSTRUATION IRREGULAR
     Dosage: UNK
     Dates: start: 20100701, end: 20100831
  3. ASCORBIC ACID [Concomitant]
     Dosage: UNK
     Dates: start: 20100901, end: 20120604
  4. MOCHATONIX [Concomitant]
     Dosage: UNK
     Dates: start: 20030101, end: 20120604
  5. GLUCOSAMINE W/CHONDROITIN SULFATE [Concomitant]
     Dosage: UNK
     Dates: start: 20100401, end: 20120604

REACTIONS (7)
  - ANXIETY [None]
  - OEDEMA PERIPHERAL [None]
  - EMOTIONAL DISTRESS [None]
  - INJURY [None]
  - GENERAL PHYSICAL HEALTH DETERIORATION [None]
  - DEEP VEIN THROMBOSIS [None]
  - PAIN IN EXTREMITY [None]
